FAERS Safety Report 23138745 (Version 7)
Quarter: 2024Q1

REPORT INFORMATION
  Report Type: Spontaneous
  Country: US (occurrence: US)
  Receive Date: 20231102
  Receipt Date: 20240313
  Transmission Date: 20240410
  Serious: Yes (Other)
  Sender: FDA-Public Use
  Company Number: US-BRISTOL-MYERS SQUIBB COMPANY-2023-155642

PATIENT
  Age: 81 Year
  Sex: Female

DRUGS (3)
  1. REVLIMID [Suspect]
     Active Substance: LENALIDOMIDE
     Indication: Non-Hodgkin^s lymphoma
     Dosage: FREQUENCY: QD FOR 21 DAYS ON AND 7 DAYS OFF
     Route: 048
  2. VITAMIN C [Concomitant]
     Active Substance: ASCORBIC ACID
     Indication: Product used for unknown indication
  3. VITAMIN D NOS [Concomitant]
     Active Substance: VITAMIN D NOS
     Indication: Product used for unknown indication

REACTIONS (10)
  - Pruritus [Recovered/Resolved]
  - Neck pain [Recovered/Resolved]
  - Constipation [Unknown]
  - Product dose omission issue [Unknown]
  - White blood cell count decreased [Unknown]
  - Insomnia [Unknown]
  - Atrial fibrillation [Unknown]
  - Immunodeficiency [Unknown]
  - Fatigue [Unknown]
  - Cellulitis [Unknown]
